FAERS Safety Report 24616876 (Version 1)
Quarter: 2024Q4

REPORT INFORMATION
  Report Type: Spontaneous
  Country: US (occurrence: US)
  Receive Date: 20241114
  Receipt Date: 20241114
  Transmission Date: 20250114
  Serious: No
  Sender: OTSUKA
  Company Number: US-OTSUKA-2024_013521

PATIENT
  Age: 61 Year
  Sex: Male
  Weight: 90.71 kg

DRUGS (2)
  1. NUEDEXTA [Suspect]
     Active Substance: DEXTROMETHORPHAN HYDROBROMIDE\QUINIDINE SULFATE
     Indication: Brain injury
     Dosage: 1 DF, BID (EVERY 12 HOURS)
     Route: 048
     Dates: end: 202207
  2. NUEDEXTA [Suspect]
     Active Substance: DEXTROMETHORPHAN HYDROBROMIDE\QUINIDINE SULFATE
     Indication: Multiple sclerosis

REACTIONS (6)
  - Weight fluctuation [Unknown]
  - Body height abnormal [Unknown]
  - Hypertension [Unknown]
  - Therapy interrupted [Not Recovered/Not Resolved]
  - Product use in unapproved indication [Unknown]
  - Inability to afford medication [Unknown]

NARRATIVE: CASE EVENT DATE: 20220701
